FAERS Safety Report 9095259 (Version 1)
Quarter: 2013Q1

REPORT INFORMATION
  Report Type: Spontaneous
  Country: ES (occurrence: None)
  Receive Date: 20130122
  Receipt Date: 20130122
  Transmission Date: 20140127
  Serious: Yes (Hospitalization)
  Sender: FDA-Public Use
  Company Number: 2013ST000005

PATIENT
  Age: 76 Year
  Sex: Male

DRUGS (1)
  1. METFORMIN (METFORMIN) [Suspect]
     Indication: DIABETES MELLITUS

REACTIONS (6)
  - Shock [None]
  - Renal failure acute [None]
  - Renal failure acute [None]
  - Lactic acidosis [None]
  - Agitation [None]
  - Disorientation [None]
